FAERS Safety Report 5438437-4 (Version None)
Quarter: 2007Q3

REPORT INFORMATION
  Report Type: 
  Country: None (occurrence: None)
  Receive Date: 20070831
  Receipt Date: 20070820
  Transmission Date: 20080115
  Serious: Yes (Hospitalization)
  Sender: FDA-Public Use
  Company Number: US-ELI_LILLY_AND_COMPANY-US200708004356

PATIENT
  Age: 80 Year
  Sex: Female

DRUGS (2)
  1. FORTEO [Suspect]
     Indication: OSTEOPOROSIS
     Dates: start: 20060701, end: 20070701
  2. DARVOCET [Concomitant]

REACTIONS (6)
  - HERPES ZOSTER [None]
  - NAUSEA [None]
  - NEUROPATHY [None]
  - PAIN [None]
  - RASH [None]
  - VOMITING [None]
